FAERS Safety Report 25904612 (Version 1)
Quarter: 2025Q4

REPORT INFORMATION
  Report Type: Spontaneous
  Country: EU (occurrence: None)
  Receive Date: 20251010
  Receipt Date: 20251010
  Transmission Date: 20260119
  Serious: Yes (Other)
  Sender: ORION
  Company Number: EU-Orion Corporation ORION PHARMA-ENTC2025-0117

PATIENT
  Age: 70 Year
  Sex: Male

DRUGS (2)
  1. STALEVO [Suspect]
     Active Substance: CARBIDOPA\ENTACAPONE\LEVODOPA
     Indication: Parkinson^s disease
     Dosage: STRENGTH: 75 MG OF LEVODOPA, 18.75 MG OF CARBIDOPA AND 200 MG OF ENTACAPONE
     Dates: start: 20240414, end: 2025
  2. STALEVO [Suspect]
     Active Substance: CARBIDOPA\ENTACAPONE\LEVODOPA
     Dosage: STRENGTH: 75 MG OF LEVODOPA, 18.75 MG OF CARBIDOPA AND 200 MG OF ENTACAPONE?DOSE INCREASED
     Dates: start: 2025

REACTIONS (4)
  - Drug ineffective [Unknown]
  - Muscle contracture [Unknown]
  - Dry mouth [Unknown]
  - Dyspepsia [Unknown]

NARRATIVE: CASE EVENT DATE: 20250101
